FAERS Safety Report 25498952 (Version 2)
Quarter: 2025Q3

REPORT INFORMATION
  Report Type: Spontaneous
  Country: CN (occurrence: CN)
  Receive Date: 20250701
  Receipt Date: 20250811
  Transmission Date: 20251021
  Serious: Yes (Other)
  Sender: NOVARTIS
  Company Number: CN-002147023-NVSC2025CN103288

PATIENT
  Age: 37 Year
  Sex: Female

DRUGS (2)
  1. TRILEPTAL [Suspect]
     Active Substance: OXCARBAZEPINE
     Indication: Epilepsy
     Route: 048
  2. TRILEPTAL [Suspect]
     Active Substance: OXCARBAZEPINE
     Route: 065

REACTIONS (5)
  - Seizure [Unknown]
  - Tremor [Unknown]
  - Product colour issue [Unknown]
  - Therapeutic product effect variable [Unknown]
  - Drug ineffective [Unknown]
